FAERS Safety Report 11224827 (Version 3)
Quarter: 2015Q3

REPORT INFORMATION
  Report Type: Spontaneous
  Country: JP (occurrence: JP)
  Receive Date: 20150629
  Receipt Date: 20150812
  Transmission Date: 20151125
  Serious: Yes (Death)
  Sender: FDA-Public Use
  Company Number: PHJP2015JP008364

PATIENT
  Age: 69 Year
  Sex: Male

DRUGS (2)
  1. DIART [Concomitant]
     Active Substance: AZOSEMIDE
     Indication: PRODUCT USED FOR UNKNOWN INDICATION
     Dosage: 30 MG, UNK
     Route: 048
     Dates: start: 201504, end: 201506
  2. TASIGNA [Suspect]
     Active Substance: NILOTINIB
     Indication: CHRONIC MYELOID LEUKAEMIA
     Route: 048
     Dates: start: 201410, end: 20150205

REACTIONS (3)
  - Pleural effusion [Fatal]
  - Concomitant disease aggravated [Fatal]
  - Respiratory depth decreased [Fatal]

NARRATIVE: CASE EVENT DATE: 20150205
